FAERS Safety Report 16563600 (Version 2)
Quarter: 2019Q3

REPORT INFORMATION
  Report Type: Spontaneous
  Country: MA (occurrence: MA)
  Receive Date: 20190712
  Receipt Date: 20190718
  Transmission Date: 20191004
  Serious: Yes (Other)
  Sender: FDA-Public Use
  Company Number: MA-LUPIN PHARMACEUTICALS INC.-2019-04258

PATIENT
  Age: 73 Year
  Sex: Female

DRUGS (3)
  1. LAMOTRIGINE. [Suspect]
     Active Substance: LAMOTRIGINE
     Dosage: UNK (DOSE INCREASED)
     Route: 065
  2. LAMOTRIGINE. [Suspect]
     Active Substance: LAMOTRIGINE
     Dosage: UNK (DOSE REDUCTION)
     Route: 065
  3. LAMOTRIGINE. [Suspect]
     Active Substance: LAMOTRIGINE
     Indication: EPILEPSY
     Dosage: 25 MILLIGRAM, QD
     Route: 065

REACTIONS (5)
  - Hallucination, visual [Recovered/Resolved]
  - Hallucination, tactile [Recovered/Resolved]
  - Obsessive-compulsive disorder [Recovered/Resolved]
  - Anxiety [Recovered/Resolved]
  - Toxicity to various agents [Recovered/Resolved]
